FAERS Safety Report 10210262 (Version 1)
Quarter: 2014Q2

REPORT INFORMATION
  Report Type: Spontaneous
  Country: ZA (occurrence: ZA)
  Receive Date: 20140602
  Receipt Date: 20140602
  Transmission Date: 20141212
  Serious: Yes (Hospitalization)
  Sender: FDA-Public Use
  Company Number: ZA-JNJFOC-20140517117

PATIENT
  Age: 46 Year
  Sex: Female

DRUGS (2)
  1. XARELTO [Suspect]
     Indication: SURGERY
     Route: 048
  2. XARELTO [Suspect]
     Indication: THROMBOSIS PROPHYLAXIS
     Route: 048

REACTIONS (1)
  - Pulmonary embolism [Recovered/Resolved]
